FAERS Safety Report 20864156 (Version 4)
Quarter: 2023Q1

REPORT INFORMATION
  Report Type: Spontaneous
  Country: US (occurrence: US)
  Receive Date: 20220523
  Receipt Date: 20230213
  Transmission Date: 20230417
  Serious: No
  Sender: FDA-Public Use
  Company Number: US-LUPIN PHARMACEUTICALS INC.-2022-07403

PATIENT
  Sex: Female

DRUGS (5)
  1. ALBUTEROL SULFATE [Suspect]
     Active Substance: ALBUTEROL SULFATE
     Indication: Chronic obstructive pulmonary disease
     Dosage: UNK, PRN, 2 PUFFS BY MOUTH EVERY FOUR HRS AS NEEDED BUT MOST OF THE TIME SHE USES INHALER IN THE MOR
  2. ALBUTEROL SULFATE [Suspect]
     Active Substance: ALBUTEROL SULFATE
     Dosage: UNK, PRN, 2 PUFFS BY MOUTH EVERY FOUR HRS AS NEEDED BUT MOST OF THE TIME SHE USES INHALER IN THE MOR
  3. ALBUTEROL SULFATE [Suspect]
     Active Substance: ALBUTEROL SULFATE
     Dosage: UNK, PRN, 2 PUFFS BY MOUTH EVERY FOUR HRS AS NEEDED BUT MOST OF THE TIME SHE USES INHALER IN THE MOR
  4. ALBUTEROL SULFATE [Suspect]
     Active Substance: ALBUTEROL SULFATE
     Dosage: UNK, PRN, 2 PUFFS BY MOUTH EVERY FOUR HRS AS NEEDED BUT MOST OF THE TIME SHE USES INHALER IN THE MOR
  5. ALBUTEROL SULFATE [Suspect]
     Active Substance: ALBUTEROL SULFATE
     Dosage: UNK, PRN, 2 PUFFS BY MOUTH EVERY FOUR HRS AS NEEDED BUT MOST OF THE TIME SHE USES INHALER IN THE MOR

REACTIONS (4)
  - Product preparation error [Unknown]
  - Circumstance or information capable of leading to device use error [Unknown]
  - Product substitution issue [Unknown]
  - No adverse event [Unknown]
